FAERS Safety Report 25669782 (Version 1)
Quarter: 2025Q3

REPORT INFORMATION
  Report Type: Spontaneous
  Country: US (occurrence: None)
  Receive Date: 20250811
  Receipt Date: 20250811
  Transmission Date: 20251021
  Serious: Yes (unspecified)
  Sender: FDA-CTU
  Company Number: None

PATIENT
  Age: 54 Year
  Sex: Female
  Weight: 90.2 kg

DRUGS (8)
  1. PACLITAXEL [Suspect]
     Active Substance: PACLITAXEL
     Route: 042
     Dates: start: 20250731, end: 20250731
  2. PACLITAXEL [Suspect]
     Active Substance: PACLITAXEL
     Route: 042
     Dates: start: 20250731, end: 20250731
  3. DIPHENHYDRAMINE [Concomitant]
     Active Substance: DIPHENHYDRAMINE
     Dates: start: 20250731, end: 20250731
  4. FAMOTIDINE [Concomitant]
     Active Substance: FAMOTIDINE
     Dates: start: 20250731, end: 20250731
  5. FOSAPREPITANT [Concomitant]
     Active Substance: FOSAPREPITANT
     Dates: start: 20250731, end: 20250731
  6. Ondansetron 16mg [Concomitant]
     Dates: start: 20250731, end: 20250731
  7. Dexamethasone 20 mg [Concomitant]
     Dates: start: 20250731, end: 20250731
  8. SODIUM CHLORIDE [Concomitant]
     Active Substance: SODIUM CHLORIDE
     Dates: start: 20250731, end: 20250731

REACTIONS (8)
  - Infusion related reaction [None]
  - Paraesthesia oral [None]
  - Paraesthesia oral [None]
  - Dyspnoea [None]
  - Flushing [None]
  - Hyperhidrosis [None]
  - Blood pressure systolic decreased [None]
  - Therapy interrupted [None]

NARRATIVE: CASE EVENT DATE: 20250731
